FAERS Safety Report 5460383-0 (Version None)
Quarter: 2007Q3

REPORT INFORMATION
  Report Type: 
  Country: None (occurrence: None)
  Receive Date: 20070919
  Receipt Date: 20070712
  Transmission Date: 20080115
  Serious: No
  Sender: FDA-Public Use
  Company Number: US-ASTRAZENECA-2007UW16381

PATIENT
  Age: 14 Year
  Sex: Female

DRUGS (4)
  1. SEROQUEL [Suspect]
     Route: 048
     Dates: start: 20070625
  2. DEPAKOTE [Concomitant]
  3. HALDOL [Concomitant]
  4. ZYPREXA [Concomitant]

REACTIONS (1)
  - HYPERPROLACTINAEMIA [None]
